FAERS Safety Report 7632102-0 (Version None)
Quarter: 2011Q3

REPORT INFORMATION
  Report Type: 
  Country: None (occurrence: None)
  Receive Date: 20110725
  Receipt Date: 20110725
  Transmission Date: 20111222
  Serious: Yes (Hospitalization, Disabling)
  Sender: FDA-Public Use
  Company Number: None

PATIENT
  Age: 10 Year
  Sex: Male
  Weight: 27.215 kg

DRUGS (2)
  1. SEROQUEL [Suspect]
     Indication: ATTENTION DEFICIT/HYPERACTIVITY DISORDER
     Dosage: ONE TABLET
     Route: 048
     Dates: start: 20110619, end: 20110623
  2. SEROQUEL [Concomitant]

REACTIONS (5)
  - DRUG WITHDRAWAL SYNDROME [None]
  - DYSKINESIA [None]
  - DRUG INEFFECTIVE [None]
  - INAPPROPRIATE SCHEDULE OF DRUG ADMINISTRATION [None]
  - COGNITIVE DISORDER [None]
